FAERS Safety Report 17386431 (Version 3)
Quarter: 2020Q1

REPORT INFORMATION
  Report Type: Spontaneous
  Country: AU (occurrence: AU)
  Receive Date: 20200206
  Receipt Date: 20200213
  Transmission Date: 20200409
  Serious: Yes (Other)
  Sender: FDA-Public Use
  Company Number: AU-PFIZER INC-2020050972

PATIENT
  Age: 63 Year
  Sex: Male

DRUGS (5)
  1. NICORETTE [NICOTINE] [Concomitant]
     Dosage: UNK
  2. NICORETTE [Concomitant]
     Active Substance: NICOTINE
     Dosage: UNK
  3. ZYBAN [Suspect]
     Active Substance: BUPROPION HYDROCHLORIDE
     Dosage: UNK
  4. NICORETTE [NICOTINE] [Concomitant]
     Dosage: UNK
  5. CHAMPIX [Suspect]
     Active Substance: VARENICLINE TARTRATE
     Dosage: UNK

REACTIONS (6)
  - Malaise [Unknown]
  - Cardiac valve disease [Unknown]
  - Tremor [Unknown]
  - Nausea [Unknown]
  - Hyperhidrosis [Unknown]
  - Headache [Unknown]
